FAERS Safety Report 23236573 (Version 1)
Quarter: 2023Q4

REPORT INFORMATION
  Report Type: Spontaneous
  Country: DE (occurrence: DE)
  Receive Date: 20231128
  Receipt Date: 20231128
  Transmission Date: 20240110
  Serious: Yes (Life-Threatening, Other)
  Sender: FDA-Public Use
  Company Number: None

PATIENT

DRUGS (9)
  1. BUPROPION [Interacting]
     Active Substance: BUPROPION
     Indication: Depression
     Dosage: 150 MG
     Route: 048
     Dates: start: 20221213
  2. SERTRALINE [Interacting]
     Active Substance: SERTRALINE HYDROCHLORIDE
     Indication: Depression
     Dosage: 50 MG
     Route: 048
     Dates: start: 20221214, end: 20221215
  3. SERTRALINE [Interacting]
     Active Substance: SERTRALINE HYDROCHLORIDE
     Dosage: 150 MG
     Route: 048
     Dates: end: 20221212
  4. SERTRALINE [Interacting]
     Active Substance: SERTRALINE HYDROCHLORIDE
     Dosage: 75 MG
     Route: 048
     Dates: start: 20221213, end: 20221213
  5. HYDROCORTISONE [Concomitant]
     Active Substance: HYDROCORTISONE
     Indication: Pituitary tumour removal
     Dosage: 20 MG
     Route: 048
  6. LEVOTHYROXINE [Concomitant]
     Active Substance: LEVOTHYROXINE
     Indication: Pituitary tumour removal
     Dosage: 150 MG
     Route: 065
  7. VITAMIN D3 [Concomitant]
     Active Substance: CHOLECALCIFEROL
     Indication: Vitamin D deficiency
     Dosage: 1000 IU
     Route: 065
     Dates: start: 20221207
  8. TESTOSTERONE [Concomitant]
     Active Substance: TESTOSTERONE
     Indication: Pituitary tumour removal
     Dosage: 1000 MG, 10 WEEK
     Route: 030
     Dates: end: 20221213
  9. PREDNISOLONE [Concomitant]
     Active Substance: PREDNISOLONE
     Indication: Pituitary tumour removal
     Dosage: 1 MG
     Route: 048

REACTIONS (6)
  - Serotonin syndrome [Not Recovered/Not Resolved]
  - Dizziness [Not Recovered/Not Resolved]
  - Dry mouth [Not Recovered/Not Resolved]
  - Hyperhidrosis [Not Recovered/Not Resolved]
  - General physical health deterioration [Not Recovered/Not Resolved]
  - Labelled drug-drug interaction issue [Not Recovered/Not Resolved]

NARRATIVE: CASE EVENT DATE: 20221216
